FAERS Safety Report 5013891-0 (Version None)
Quarter: 2006Q2

REPORT INFORMATION
  Report Type: 
  Country: None (occurrence: None)
  Receive Date: 20060525
  Receipt Date: 20060512
  Transmission Date: 20061013
  Serious: Yes (Hospitalization)
  Sender: FDA-Public Use
  Company Number: 2006021272

PATIENT
  Age: 66 Year
  Sex: Male

DRUGS (10)
  1. SUTENT [Suspect]
     Indication: RENAL CELL CARCINOMA STAGE UNSPECIFIED
     Dosage: 50 + 37.5 MG (50 MG, ONCE DAILY - INTERVAL: 4 WKS ON, 1 OFF), ORAL
     Route: 048
     Dates: start: 20051129, end: 20051208
  2. SUTENT [Suspect]
     Indication: RENAL CELL CARCINOMA STAGE UNSPECIFIED
     Dosage: 50 + 37.5 MG (50 MG, ONCE DAILY - INTERVAL: 4 WKS ON, 1 OFF), ORAL
     Route: 048
     Dates: start: 20051216, end: 20060102
  3. SUTENT [Suspect]
     Indication: RENAL CELL CARCINOMA STAGE UNSPECIFIED
     Dosage: 50 + 37.5 MG (50 MG, ONCE DAILY - INTERVAL: 4 WKS ON, 1 OFF), ORAL
     Route: 048
     Dates: start: 20060117, end: 20060209
  4. AMLODIPINE [Concomitant]
  5. MORPHINE SULFATE [Concomitant]
  6. ZOLPIDEM TARTRATE [Concomitant]
  7. DOMPERIDONE (DOMPERIDONE) [Concomitant]
  8. ACETAMINOPHEN [Concomitant]
  9. ZOLEDRONIC ACID (ZOLEDRONIC ACID) [Concomitant]
  10. ALIZAPRIDE (ALIZAPRIDE) [Concomitant]

REACTIONS (7)
  - BACK PAIN [None]
  - DIZZINESS [None]
  - FACIAL PALSY [None]
  - HYPOACUSIS [None]
  - INNER EAR DISORDER [None]
  - THERAPEUTIC RESPONSE DECREASED [None]
  - TRANSIENT ISCHAEMIC ATTACK [None]
